FAERS Safety Report 17661068 (Version 1)
Quarter: 2020Q2

REPORT INFORMATION
  Report Type: Spontaneous
  Country: GB (occurrence: GB)
  Receive Date: 20200413
  Receipt Date: 20200413
  Transmission Date: 20200713
  Serious: Yes (Hospitalization)
  Sender: FDA-Public Use
  Company Number: GB-ACCORD-178547

PATIENT
  Age: 94 Year
  Sex: Male

DRUGS (10)
  1. BUMETANIDE. [Suspect]
     Active Substance: BUMETANIDE
     Indication: PRODUCT USED FOR UNKNOWN INDICATION
     Route: 048
     Dates: end: 20200118
  2. TAMSULOSIN [Concomitant]
     Active Substance: TAMSULOSIN
     Dosage: IN THE MORNING
     Route: 048
  3. IRON [Concomitant]
     Active Substance: IRON
     Dosage: AT NIGHT
     Route: 048
  4. LISINOPRIL. [Suspect]
     Active Substance: LISINOPRIL
     Indication: PRODUCT USED FOR UNKNOWN INDICATION
     Dosage: IN THE MORNING
     Route: 048
     Dates: end: 20200118
  5. SOLIFENACIN [Concomitant]
     Active Substance: SOLIFENACIN
     Dosage: IN THE MORNING
     Route: 048
  6. RIVAROXABAN [Concomitant]
     Active Substance: RIVAROXABAN
     Dosage: WITH FOOD
     Route: 048
  7. ERDOSTEINE [Concomitant]
     Active Substance: ERDOSTEINE
     Dosage: IN THE MORNING
     Route: 048
  8. ATORVASTATIN [Concomitant]
     Active Substance: ATORVASTATIN
     Dosage: IN THE MORNING
     Route: 048
  9. CARVEDILOL. [Concomitant]
     Active Substance: CARVEDILOL
     Route: 048
  10. LANSOPRAZOLE. [Concomitant]
     Active Substance: LANSOPRAZOLE
     Dosage: IN THE MORNING
     Route: 048

REACTIONS (2)
  - Hyponatraemia [Recovered/Resolved]
  - Fall [Unknown]

NARRATIVE: CASE EVENT DATE: 20200118
